FAERS Safety Report 23191121 (Version 2)
Quarter: 2024Q4

REPORT INFORMATION
  Report Type: Report from Study
  Country: US (occurrence: US)
  Receive Date: 20231116
  Receipt Date: 20241030
  Transmission Date: 20250114
  Serious: Yes (Hospitalization, Other)
  Sender: SANDOZ
  Company Number: US-002147023-NVSC2022US081372

PATIENT
  Age: 45 Year
  Sex: Female
  Weight: 50.794 kg

DRUGS (59)
  1. TREPROSTINIL [Suspect]
     Active Substance: TREPROSTINIL
     Dosage: 28 NG/KG/ MIN CONTINOUS
     Route: 058
     Dates: start: 20211201
  2. TREPROSTINIL [Suspect]
     Active Substance: TREPROSTINIL
     Dosage: 25 NG/KG/MIN
     Route: 058
  3. TREPROSTINIL [Suspect]
     Active Substance: TREPROSTINIL
     Dosage: 28 NG/KG/ MIN CONTINOUS
     Route: 058
     Dates: start: 20211201
  4. TREPROSTINIL [Suspect]
     Active Substance: TREPROSTINIL
     Dosage: 28 NG/KG/ MIN CONTINOUS
     Route: 058
     Dates: start: 20240425
  5. TREPROSTINIL [Suspect]
     Active Substance: TREPROSTINIL
     Dosage: 25 NG/KG/MIN
     Route: 058
     Dates: start: 20210112
  6. TREPROSTINIL [Suspect]
     Active Substance: TREPROSTINIL
     Indication: Pulmonary arterial hypertension
     Dosage: 6 NG/KG/MIN, CONT
     Route: 058
     Dates: start: 202108
  7. TREPROSTINIL [Suspect]
     Active Substance: TREPROSTINIL
     Dosage: 6 NG/KG/MIN, CONT
     Route: 058
     Dates: start: 20211201
  8. TREPROSTINIL [Suspect]
     Active Substance: TREPROSTINIL
     Dosage: 9 NG/KG/MIN, CONT
     Route: 058
  9. TREPROSTINIL [Suspect]
     Active Substance: TREPROSTINIL
     Dosage: 15 NG/KG/MIN, CONT
     Route: 058
  10. TREPROSTINIL [Suspect]
     Active Substance: TREPROSTINIL
     Dosage: 7.5 NG/KG/MIN, CONT
     Route: 058
  11. TREPROSTINIL [Suspect]
     Active Substance: TREPROSTINIL
     Dosage: 27.8 NG/KG/MIN, CONT
     Route: 058
  12. TREPROSTINIL [Suspect]
     Active Substance: TREPROSTINIL
     Dosage: 30 NG/KG/MIN, CONT
     Route: 058
  13. TREPROSTINIL [Suspect]
     Active Substance: TREPROSTINIL
     Dosage: 28 NG/KG/MIN, CONT
     Route: 058
  14. TREPROSTINIL [Suspect]
     Active Substance: TREPROSTINIL
     Dosage: 28 NG/KG/ MIN, CONT
     Route: 058
     Dates: start: 20211201
  15. TREPROSTINIL [Suspect]
     Active Substance: TREPROSTINIL
     Dosage: 12 NG/KG/MIN, CONT
     Route: 058
  16. ACETAMINOPHEN AND CODEINE [Concomitant]
     Active Substance: ACETAMINOPHEN\CODEINE PHOSPHATE
     Indication: Product used for unknown indication
     Route: 065
  17. ACETAMINOPHEN AND CODEINE [Concomitant]
     Active Substance: ACETAMINOPHEN\CODEINE PHOSPHATE
     Indication: Product used for unknown indication
     Route: 065
  18. ADEMPAS [Concomitant]
     Active Substance: RIOCIGUAT
     Indication: Product used for unknown indication
     Dosage: UNK
     Route: 065
  19. AMBRISENTAN [Concomitant]
     Active Substance: AMBRISENTAN
     Indication: Product used for unknown indication
     Dosage: UNK
     Route: 065
  20. AMITRIPTYLINE [Concomitant]
     Active Substance: AMITRIPTYLINE
     Indication: Product used for unknown indication
     Route: 065
  21. AMITRIPTYLINE [Concomitant]
     Active Substance: AMITRIPTYLINE
     Indication: Product used for unknown indication
     Route: 065
  22. BACLOFEN [Concomitant]
     Active Substance: BACLOFEN
     Indication: Product used for unknown indication
     Route: 065
  23. CEFUROXIME [Concomitant]
     Active Substance: CEFUROXIME
     Indication: Product used for unknown indication
     Route: 065
  24. CEFUROXIME [Concomitant]
     Active Substance: CEFUROXIME
     Indication: Product used for unknown indication
     Route: 065
  25. CEPHALEXIN [Concomitant]
     Active Substance: CEPHALEXIN
     Indication: Product used for unknown indication
     Route: 065
  26. CEPHALEXIN [Concomitant]
     Active Substance: CEPHALEXIN
     Indication: Product used for unknown indication
     Route: 065
  27. CLONIDINE [Concomitant]
     Active Substance: CLONIDINE
     Indication: Product used for unknown indication
     Route: 065
  28. DICLOFENAC SODIUM [Concomitant]
     Active Substance: DICLOFENAC SODIUM
     Indication: Product used for unknown indication
     Route: 065
  29. DOXYCYCLINE HYCLATE [Concomitant]
     Active Substance: DOXYCYCLINE HYCLATE
     Indication: Product used for unknown indication
     Route: 065
  30. DOXYCYCLINE HYCLATE [Concomitant]
     Active Substance: DOXYCYCLINE HYCLATE
     Indication: Product used for unknown indication
     Route: 065
  31. FERROUS SULFATE [Concomitant]
     Active Substance: FERROUS SULFATE
     Indication: Product used for unknown indication
     Route: 065
  32. FOLIC ACID [Concomitant]
     Active Substance: FOLIC ACID
     Indication: Product used for unknown indication
     Route: 065
  33. FUROSEMIDE [Concomitant]
     Active Substance: FUROSEMIDE
     Indication: Product used for unknown indication
     Route: 065
  34. FUROSEMIDE [Concomitant]
     Active Substance: FUROSEMIDE
     Indication: Product used for unknown indication
     Route: 065
  35. GABAPENTIN [Concomitant]
     Active Substance: GABAPENTIN
     Indication: Product used for unknown indication
     Route: 065
  36. GABAPENTIN [Concomitant]
     Active Substance: GABAPENTIN
     Indication: Product used for unknown indication
     Route: 065
  37. HYDROCHLOROTHIAZIDE [Concomitant]
     Active Substance: HYDROCHLOROTHIAZIDE
     Indication: Product used for unknown indication
     Route: 065
  38. HYDROCHLOROTHIAZIDE [Concomitant]
     Active Substance: HYDROCHLOROTHIAZIDE
     Indication: Product used for unknown indication
     Route: 065
  39. HYDROXYCHLOROQUINE SULFATE [Concomitant]
     Active Substance: HYDROXYCHLOROQUINE SULFATE
     Indication: Product used for unknown indication
     Route: 065
  40. JARDIANCE [Concomitant]
     Active Substance: EMPAGLIFLOZIN
     Indication: Product used for unknown indication
     Route: 065
  41. JARDIANCE [Concomitant]
     Active Substance: EMPAGLIFLOZIN
     Indication: Product used for unknown indication
     Route: 065
  42. KETAMINE [Concomitant]
     Active Substance: KETAMINE
     Indication: Product used for unknown indication
     Route: 065
  43. KETOPROFEN [Concomitant]
     Active Substance: KETOPROFEN
     Indication: Product used for unknown indication
     Route: 065
  44. LECITHIN [Concomitant]
     Active Substance: LECITHIN
     Indication: Product used for unknown indication
     Route: 065
  45. LIDOCAINE [Concomitant]
     Active Substance: LIDOCAINE
     Indication: Product used for unknown indication
     Route: 065
  46. NEOMYCIN AND POLYMYXIN B SULFATES AND DEXAMETHASONE [Concomitant]
     Active Substance: DEXAMETHASONE\NEOMYCIN SULFATE\POLYMYXIN B SULFATE
     Indication: Product used for unknown indication
     Route: 065
  47. ONDANSETRON HYDROCHLORIDE [Concomitant]
     Active Substance: ONDANSETRON HYDROCHLORIDE
     Indication: Product used for unknown indication
     Route: 065
  48. ONDANSETRON HYDROCHLORIDE [Concomitant]
     Active Substance: ONDANSETRON HYDROCHLORIDE
     Indication: Product used for unknown indication
     Route: 065
  49. OXYGEN [Concomitant]
     Active Substance: OXYGEN
     Indication: Product used for unknown indication
     Route: 065
  50. POLOXAMER [Concomitant]
     Active Substance: POLOXAMER
     Indication: Product used for unknown indication
     Route: 065
  51. POTASSIUM CHLORIDE [Concomitant]
     Active Substance: POTASSIUM CHLORIDE
     Indication: Product used for unknown indication
     Route: 065
  52. PREDNISONE [Concomitant]
     Active Substance: PREDNISONE
     Indication: Product used for unknown indication
     Route: 065
  53. SILDENAFIL CITRATE [Concomitant]
     Active Substance: SILDENAFIL CITRATE
     Indication: Product used for unknown indication
     Dosage: UNK
     Route: 065
  54. TRAZODONE HCL [Concomitant]
     Active Substance: TRAZODONE HYDROCHLORIDE
     Indication: Product used for unknown indication
     Route: 065
  55. TYLENOL EXTRA STRENGTH [Concomitant]
     Active Substance: ACETAMINOPHEN
     Indication: Product used for unknown indication
     Route: 065
  56. TYVASO [Concomitant]
     Active Substance: TREPROSTINIL
     Indication: Product used for unknown indication
     Route: 065
  57. TYVASO [Concomitant]
     Active Substance: TREPROSTINIL
     Indication: Product used for unknown indication
     Route: 065
  58. VITAMIN D2 [Concomitant]
     Active Substance: ERGOCALCIFEROL
     Indication: Product used for unknown indication
     Route: 065
  59. VITAMIN D2 [Concomitant]
     Active Substance: ERGOCALCIFEROL
     Indication: Product used for unknown indication
     Route: 065

REACTIONS (60)
  - Mastoiditis [Unknown]
  - Pneumonia [Unknown]
  - Pericardial effusion [Unknown]
  - Pulmonary hypertension [Unknown]
  - Influenza [Unknown]
  - Respiratory symptom [Unknown]
  - Condition aggravated [Unknown]
  - Respiratory syncytial virus infection [Unknown]
  - Hypervolaemia [Unknown]
  - Infusion site abscess [Unknown]
  - Peripheral swelling [Unknown]
  - Dyspnoea [Unknown]
  - Injection site abscess [Unknown]
  - Generalised oedema [Unknown]
  - Weight decreased [Unknown]
  - Pain [Unknown]
  - Eyelid skin dryness [Unknown]
  - Muscular weakness [Unknown]
  - Hypoaesthesia [Unknown]
  - Decreased appetite [Unknown]
  - Irritability [Unknown]
  - Hypersensitivity [Unknown]
  - Pruritus [Unknown]
  - Dry skin [Unknown]
  - Skin injury [Unknown]
  - Scab [Unknown]
  - Skin haemorrhage [Unknown]
  - Asthenia [Unknown]
  - Purulent discharge [Unknown]
  - Skin laceration [Recovered/Resolved]
  - Skin haemorrhage [Recovered/Resolved]
  - Infusion site haemorrhage [Unknown]
  - Injection site haemorrhage [Unknown]
  - Infusion site infection [Unknown]
  - Infusion site pain [Recovered/Resolved]
  - Infusion site swelling [Recovered/Resolved]
  - Injection site erythema [Not Recovered/Not Resolved]
  - Injection site pain [Unknown]
  - Infusion site dryness [Unknown]
  - Infusion site discharge [Not Recovered/Not Resolved]
  - Infusion site pruritus [Not Recovered/Not Resolved]
  - Application site infection [Unknown]
  - Infusion site pain [Not Recovered/Not Resolved]
  - Infusion site haemorrhage [Unknown]
  - Headache [Unknown]
  - Nausea [Unknown]
  - Diarrhoea [Unknown]
  - Erythema [Unknown]
  - Myalgia [Unknown]
  - Fatigue [Unknown]
  - Oedema [Recovering/Resolving]
  - Arthralgia [Unknown]
  - Rash [Unknown]
  - Pain in extremity [Unknown]
  - Injection site pain [Recovering/Resolving]
  - Injection site swelling [Unknown]
  - Malaise [Unknown]
  - Injection site mass [Unknown]
  - Vomiting [Unknown]
  - Product dose omission issue [Unknown]

NARRATIVE: CASE EVENT DATE: 20221001
